FAERS Safety Report 13895977 (Version 1)
Quarter: 2017Q3

REPORT INFORMATION
  Report Type: Spontaneous
  Country: US (occurrence: None)
  Receive Date: 20170817
  Receipt Date: 20170817
  Transmission Date: 20171127
  Serious: Yes (Hospitalization)
  Sender: FDA-Public Use
  Company Number: None

PATIENT
  Age: 26 Year
  Sex: Female

DRUGS (11)
  1. CEPHALEXIN. [Concomitant]
     Active Substance: CEPHALEXIN
  2. TOPIRAM BUSPIRONE [Concomitant]
  3. OXY [Concomitant]
     Active Substance: BENZOYL PEROXIDE
  4. PROMACTA [Suspect]
     Active Substance: ELTROMBOPAG OLAMINE
     Indication: BRAIN NEOPLASM
     Route: 048
     Dates: start: 20161116
  5. LYRICA [Concomitant]
     Active Substance: PREGABALIN
  6. DULOXETINE. [Concomitant]
     Active Substance: DULOXETINE
  7. GLEOSTINE [Suspect]
     Active Substance: LOMUSTINE
     Indication: BRAIN NEOPLASM
     Dosage: OTHER FREQUENCY:Q 6 WKS;?
     Route: 048
     Dates: start: 20170111
  8. GLEOSTINE [Suspect]
     Active Substance: LOMUSTINE
     Indication: BRAIN NEOPLASM
     Dosage: ?          OTHER FREQUENCY:Q 6 WKS;?
     Route: 048
     Dates: start: 20170111
  9. MICROGETST [Concomitant]
  10. GLEOSTINE [Suspect]
     Active Substance: LOMUSTINE
     Indication: BRAIN NEOPLASM
     Dosage: EVERY 6 WEEKS
     Route: 048
     Dates: start: 20170111
  11. CEFADROX [Concomitant]

REACTIONS (1)
  - Mouth haemorrhage [None]

NARRATIVE: CASE EVENT DATE: 20170809
